FAERS Safety Report 4377761-3 (Version None)
Quarter: 2004Q2

REPORT INFORMATION
  Report Type: 
  Country: None (occurrence: None)
  Receive Date: 20040615
  Receipt Date: 20040610
  Transmission Date: 20050107
  Serious: Yes (Other)
  Sender: FDA-Public Use
  Company Number: CH-MERCK-0406CHE00014

PATIENT
  Sex: Male

DRUGS (2)
  1. PRIMAXIN [Suspect]
     Indication: SEPSIS
     Route: 042
     Dates: start: 20040601, end: 20040601
  2. CISPLATIN [Concomitant]
     Indication: BRONCHIAL CARCINOMA
     Route: 065

REACTIONS (3)
  - HEPATIC FAILURE [None]
  - ISCHAEMIC HEPATITIS [None]
  - PULMONARY EMBOLISM [None]
